FAERS Safety Report 5836955-8 (Version None)
Quarter: 2008Q3

REPORT INFORMATION
  Report Type: 
  Country: None (occurrence: None)
  Receive Date: 20080807
  Receipt Date: 20080729
  Transmission Date: 20090109
  Serious: Yes (Hospitalization)
  Sender: FDA-Public Use
  Company Number: FR-JNJFOC-20080706633

PATIENT
  Sex: Female
  Weight: 109 kg

DRUGS (5)
  1. RISPERDAL [Suspect]
     Indication: PSYCHOTIC DISORDER
     Route: 048
  2. ECONAZOLE NITRATE [Concomitant]
     Route: 003
  3. LEVOTHYROX [Concomitant]
     Indication: HYPOTHYROIDISM
     Route: 048
  4. ASPEGIC 325 [Concomitant]
     Route: 048
  5. FORLAX [Concomitant]
     Indication: CONSTIPATION
     Route: 048

REACTIONS (4)
  - AUTOIMMUNE THYROIDITIS [None]
  - FALL [None]
  - PERNICIOUS ANAEMIA [None]
  - SKIN ULCER [None]
